FAERS Safety Report 24902592 (Version 1)
Quarter: 2025Q1

REPORT INFORMATION
  Report Type: Spontaneous
  Country: DE (occurrence: DE)
  Receive Date: 20250130
  Receipt Date: 20250130
  Transmission Date: 20250409
  Serious: Yes (Other)
  Sender: TEVA
  Company Number: DE-EMB-M202306431-1

PATIENT
  Sex: Male
  Weight: 2 kg

DRUGS (11)
  1. ASPIRIN [Suspect]
     Active Substance: ASPIRIN
     Indication: Thrombosis prophylaxis
     Dosage: ASS 100
     Route: 064
     Dates: start: 202306, end: 202402
  2. EZETIMIBE [Concomitant]
     Active Substance: EZETIMIBE
     Indication: Ischaemic heart disease prophylaxis
     Route: 064
     Dates: start: 202306, end: 202308
  3. INFLUENZA VIRUS VACCINE [Concomitant]
     Active Substance: INFLUENZA VIRUS VACCINE
     Indication: Immunisation
     Route: 064
  4. NICOTINE [Concomitant]
     Active Substance: NICOTINE
     Indication: Tobacco user
     Route: 064
  5. PANTOPRAZOLE [Suspect]
     Active Substance: PANTOPRAZOLE
     Indication: Prophylaxis against gastrointestinal ulcer
     Route: 064
     Dates: start: 202306, end: 202402
  6. DIPHTHERIA AND TETANUS TOXOIDS AND PERTUSSIS VACCINE ADSORBED NOS [Suspect]
     Active Substance: DIPHTHERIA AND TETANUS TOXOIDS AND PERTUSSIS VACCINE
     Indication: Immunisation
     Route: 064
  7. SIMVASTATIN [Suspect]
     Active Substance: SIMVASTATIN
     Indication: Ischaemic heart disease prophylaxis
     Route: 064
     Dates: start: 202308, end: 202402
  8. FOLIC ACID [Concomitant]
     Active Substance: FOLIC ACID
     Indication: Prophylaxis of neural tube defect
     Route: 064
     Dates: start: 202307, end: 202402
  9. CANDESARTAN [Concomitant]
     Active Substance: CANDESARTAN
     Indication: Hypertension
     Route: 064
     Dates: start: 202306, end: 202308
  10. ROSUVASTATIN [Concomitant]
     Active Substance: ROSUVASTATIN
     Indication: Ischaemic heart disease prophylaxis
     Route: 064
     Dates: start: 202306, end: 202308
  11. BISOPROLOL [Suspect]
     Active Substance: BISOPROLOL
     Indication: Ischaemic heart disease prophylaxis
     Route: 064
     Dates: start: 202306, end: 202402

REACTIONS (2)
  - Small for dates baby [Recovering/Resolving]
  - Foetal exposure during pregnancy [Unknown]

NARRATIVE: CASE EVENT DATE: 20240201
